FAERS Safety Report 7948347-6 (Version None)
Quarter: 2011Q4

REPORT INFORMATION
  Report Type: 
  Country: None (occurrence: None)
  Receive Date: 20111123
  Receipt Date: 20111111
  Transmission Date: 20120403
  Serious: Yes (Life-Threatening)
  Sender: FDA-Public Use
  Company Number: TCI2011A04883

PATIENT
  Age: 75 Year
  Sex: Male

DRUGS (6)
  1. METFORMIN HYDROCHLORIDE [Concomitant]
  2. ZOLPIDEM TARTRATE [Concomitant]
  3. ACTOS [Suspect]
     Indication: DIABETES MELLITUS
     Dosage: 15 MG (15 MG, 1 IN 1 D), PER ORAL
     Route: 048
     Dates: start: 20080911, end: 20110630
  4. AMARYL [Concomitant]
  5. FLUVASTATIN [Concomitant]
  6. MICARDIS [Concomitant]

REACTIONS (7)
  - BLADDER CANCER [None]
  - PROSTATIC CALCIFICATION [None]
  - CHOLELITHIASIS [None]
  - FLANK PAIN [None]
  - HAEMATURIA [None]
  - HEPATIC STEATOSIS [None]
  - RENAL CYST [None]
